FAERS Safety Report 15017680 (Version 1)
Quarter: 2018Q2

REPORT INFORMATION
  Report Type: Spontaneous
  Country: US (occurrence: US)
  Receive Date: 20180615
  Receipt Date: 20180615
  Transmission Date: 20180711
  Serious: No
  Sender: FDA-Public Use
  Company Number: US-TEVA-2018-US-905435

PATIENT
  Sex: Female

DRUGS (1)
  1. NORTRIPTYLENE HYDROCHLORIDE [Suspect]
     Active Substance: NORTRIPTYLINE HYDROCHLORIDE
     Indication: NEURALGIA
     Dosage: 25 MILLIGRAM DAILY;
     Route: 065
     Dates: start: 20180606

REACTIONS (3)
  - Therapeutic response unexpected [Unknown]
  - Drug prescribing error [Unknown]
  - Product use in unapproved indication [Unknown]

NARRATIVE: CASE EVENT DATE: 20180606
